FAERS Safety Report 21403560 (Version 1)
Quarter: 2022Q4

REPORT INFORMATION
  Report Type: Spontaneous
  Country: US (occurrence: US)
  Receive Date: 20221003
  Receipt Date: 20221003
  Transmission Date: 20230113
  Serious: No
  Sender: FDA-Public Use
  Company Number: US-TAKEDA-2022TUS068719

PATIENT
  Sex: Female
  Weight: 73 kg

DRUGS (1)
  1. PENTASA [Suspect]
     Active Substance: MESALAMINE
     Indication: Colitis ulcerative
     Dosage: 4 DOSAGE FORM, QD
     Route: 065

REACTIONS (3)
  - Frustration tolerance decreased [Unknown]
  - Therapy interrupted [Unknown]
  - Product availability issue [Unknown]
